FAERS Safety Report 8762479 (Version 2)
Quarter: 2012Q4

REPORT INFORMATION
  Report Type: Report from Study
  Country: JP (occurrence: JP)
  Receive Date: 20120830
  Receipt Date: 20120914
  Transmission Date: 20130627
  Serious: Yes (Death)
  Sender: FDA-Public Use
  Company Number: JP-PFIZER INC-2012212655

PATIENT
  Age: 73 Year
  Sex: Male
  Weight: 58 kg

DRUGS (2)
  1. ZOSYN [Suspect]
     Indication: PNEUMONIA
     Dosage: 4.5 g, 3x/day
     Route: 041
     Dates: start: 20090417, end: 20090427
  2. TULOBUTEROL HYDROCHLORIDE [Concomitant]
     Dosage: 1 mg, 1x/day
     Dates: start: 20090417, end: 20090502

REACTIONS (1)
  - Interstitial lung disease [Fatal]
